FAERS Safety Report 15021245 (Version 5)
Quarter: 2020Q4

REPORT INFORMATION
  Report Type: Spontaneous
  Country: US (occurrence: US)
  Receive Date: 20180618
  Receipt Date: 20201109
  Transmission Date: 20210113
  Serious: No
  Sender: FDA-Public Use
  Company Number: US-VERTEX PHARMACEUTICALS-2018-004080

PATIENT
  Age: 28 Year
  Sex: Female
  Weight: 44 kg

DRUGS (6)
  1. ZENPEP [Concomitant]
     Active Substance: PANCRELIPASE AMYLASE\PANCRELIPASE LIPASE\PANCRELIPASE PROTEASE
     Dosage: UNK
  2. SYMDEKO [Suspect]
     Active Substance: IVACAFTOR\TEZACAFTOR
     Dosage: 100MG TEZACAFTOR/150MGIVACAFTOR  AND 150MG IVACAFTOR
     Route: 048
     Dates: start: 20201002
  3. SYMDEKO [Suspect]
     Active Substance: IVACAFTOR\TEZACAFTOR
     Indication: CYSTIC FIBROSIS
     Dosage: HALF TABLET OF (100 MG TEZACAFTOR/150 MG IVACAFTOR)
     Route: 048
     Dates: start: 20180605, end: 20180606
  4. TOBI [Concomitant]
     Active Substance: TOBRAMYCIN
     Dosage: UNK, PRN
  5. PULMOZYME [Concomitant]
     Active Substance: DORNASE ALFA
     Dosage: UNK
  6. CLARITIN [Concomitant]
     Active Substance: LORATADINE
     Dosage: UNK
     Dates: start: 20201002, end: 202010

REACTIONS (5)
  - Swelling [Recovered/Resolved]
  - Rash pruritic [Recovered/Resolved]
  - Hypersensitivity [Recovered/Resolved]
  - Erythema [Recovered/Resolved]
  - Urticaria [Recovered/Resolved]

NARRATIVE: CASE EVENT DATE: 20180605
